FAERS Safety Report 9314798 (Version 3)
Quarter: 2013Q4

REPORT INFORMATION
  Report Type: Spontaneous
  Country: US (occurrence: US)
  Receive Date: 20130529
  Receipt Date: 20131212
  Transmission Date: 20140711
  Serious: Yes (Other)
  Sender: FDA-Public Use
  Company Number: US-PFIZER INC-2013163044

PATIENT
  Age: 61 Year
  Sex: Female
  Weight: 63.49 kg

DRUGS (8)
  1. LYRICA [Suspect]
     Indication: NEUROPATHY PERIPHERAL
     Dosage: 100 MG, 1X/DAY
     Route: 048
     Dates: start: 2009
  2. LYRICA [Suspect]
     Indication: DIABETIC NEUROPATHY
  3. BABY ASPIRIN [Concomitant]
     Dosage: 81 MG, MONTHLY
     Route: 048
  4. TYLENOL [Concomitant]
     Indication: HEADACHE
     Dosage: 500 MG, AS NEEDED
  5. DEPAKOTE [Concomitant]
     Dosage: UNK
  6. LORAZEPAM [Concomitant]
     Dosage: UNK
  7. SUDAFED [Concomitant]
     Dosage: UNK
  8. ZONEGRAN [Concomitant]
     Dosage: UNK

REACTIONS (3)
  - Gingival disorder [Not Recovered/Not Resolved]
  - Convulsion [Unknown]
  - Nasopharyngitis [Unknown]
